FAERS Safety Report 5463311-7 (Version None)
Quarter: 2007Q3

REPORT INFORMATION
  Report Type: 
  Country: None (occurrence: None)
  Receive Date: 20070920
  Receipt Date: 20070905
  Transmission Date: 20080115
  Serious: Yes (Hospitalization)
  Sender: FDA-Public Use
  Company Number: CH-GENENTECH-246804

PATIENT
  Sex: Male

DRUGS (8)
  1. BEVACIZUMAB [Suspect]
     Indication: NON-SMALL CELL LUNG CANCER
     Dosage: 1185 MG, Q3W
     Route: 042
     Dates: start: 20061213, end: 20070530
  2. ERLOTINIB [Suspect]
     Indication: NON-SMALL CELL LUNG CANCER
     Dosage: 150 MG, QD
     Route: 048
     Dates: start: 20061213, end: 20070226
  3. ERLOTINIB [Suspect]
     Dosage: 100 MG, QD
     Route: 048
     Dates: start: 20070227, end: 20070401
  4. CISPLATIN [Suspect]
     Indication: NON-SMALL CELL LUNG CANCER
     Dosage: 160 MG, Q3W
     Route: 042
     Dates: start: 20070705, end: 20070731
  5. GEMZAR [Suspect]
     Indication: NON-SMALL CELL LUNG CANCER
     Dosage: 2500 MG, Q3W
     Route: 042
     Dates: start: 20070705, end: 20070809
  6. IRFEN [Concomitant]
     Indication: DRUG USE FOR UNKNOWN INDICATION
     Dates: start: 20061228
  7. DAFALGAN [Concomitant]
     Indication: DRUG USE FOR UNKNOWN INDICATION
  8. NEXIUM [Concomitant]
     Indication: DRUG USE FOR UNKNOWN INDICATION

REACTIONS (1)
  - BURSITIS [None]
